FAERS Safety Report 9099276 (Version 3)
Quarter: 2013Q3

REPORT INFORMATION
  Report Type: Spontaneous
  Country: US (occurrence: US)
  Receive Date: 20130214
  Receipt Date: 20130805
  Transmission Date: 20140515
  Serious: Yes (Death, Other)
  Sender: FDA-Public Use
  Company Number: US-COVIDIEN/TYCO HEALTHCARE/MALLINCKRODT-T201300769

PATIENT
  Age: 32 Year
  Sex: Female
  Weight: 77.98 kg

DRUGS (8)
  1. FENTANYL TRANSDERMAL SYSTEM [Suspect]
     Indication: PAIN
     Dosage: 100 MCG/HR Q 72 HOURS
     Route: 062
     Dates: start: 20130204, end: 201302
  2. FENTANYL [Suspect]
     Dosage: UNK
     Dates: start: 201302
  3. ROXICODONE [Suspect]
     Dosage: 7.5 MG, 14-6HRS PRN
  4. KLONOPIN [Concomitant]
     Dosage: 1 MG, Q6HRS
  5. CARAFATE [Concomitant]
     Dosage: 1000 MG, QID
  6. SERTRALINE [Concomitant]
     Dosage: 100 MG, UNK
  7. PRENATAL VITAMINS                  /01549301/ [Concomitant]
  8. ROXICODONE [Suspect]

REACTIONS (6)
  - Premature delivery [Recovered/Resolved]
  - Exposure during pregnancy [Unknown]
  - Application site erythema [Recovered/Resolved]
  - Application site pruritus [Recovered/Resolved]
  - Inappropriate schedule of drug administration [Recovered/Resolved]
  - Wrong technique in drug usage process [Unknown]
